FAERS Safety Report 8610303-2 (Version None)
Quarter: 2012Q3

REPORT INFORMATION
  Report Type: 
  Country: None (occurrence: None)
  Receive Date: 20120822
  Receipt Date: 20120815
  Transmission Date: 20120928
  Serious: Yes (Other)
  Sender: FDA-Public Use
  Company Number: PHHY2012AU070780

PATIENT
  Age: 54 Year
  Sex: Male

DRUGS (5)
  1. PREDNISOLONE [Concomitant]
  2. MYCOPHENOLATE MOFETIL [Concomitant]
  3. TACROLIMUS [Concomitant]
  4. BASILIXIMAB [Suspect]
     Indication: RENAL TRANSPLANT
  5. IMMUNE GLOBULIN NOS [Suspect]
     Route: 042

REACTIONS (12)
  - RENAL FAILURE [None]
  - COMPLICATIONS OF TRANSPLANTED KIDNEY [None]
  - INFLAMMATION [None]
  - RENAL IMPAIRMENT [None]
  - BK VIRUS INFECTION [None]
  - THROMBOCYTOPENIA [None]
  - POLYOMAVIRUS-ASSOCIATED NEPHROPATHY [None]
  - THROMBOTIC MICROANGIOPATHY [None]
  - OLIGURIA [None]
  - ANAEMIA [None]
  - BLOOD LACTATE DEHYDROGENASE INCREASED [None]
  - MALAISE [None]
